FAERS Safety Report 8618697-9 (Version None)
Quarter: 2012Q3

REPORT INFORMATION
  Report Type: 
  Country: None (occurrence: None)
  Receive Date: 20120824
  Receipt Date: 20120814
  Transmission Date: 20120928
  Serious: Yes (Other)
  Sender: FDA-Public Use
  Company Number: BR-JNJFOC-20120514943

PATIENT
  Sex: Female
  Weight: 50 kg

DRUGS (22)
  1. REMICADE [Suspect]
     Route: 042
     Dates: start: 20120706
  2. CORTICOSTEROID [Suspect]
     Route: 065
     Dates: start: 20111201
  3. CORTICOSTEROID [Suspect]
     Indication: PRURITUS
     Route: 065
     Dates: start: 20111218
  4. CORTICOSTEROID [Suspect]
     Route: 065
     Dates: start: 20120706
  5. CORTICOSTEROID [Suspect]
     Route: 065
     Dates: start: 20120115
  6. CORTICOSTEROID [Suspect]
     Route: 065
     Dates: start: 20111001
  7. CLONAZEPAM [Concomitant]
     Route: 048
     Dates: start: 20111001
  8. CORTICOSTEROID [Suspect]
     Indication: PREMEDICATION
     Route: 065
     Dates: start: 20120706
  9. PAROXETINE [Concomitant]
     Indication: ANXIETY
     Route: 048
     Dates: start: 20111001
  10. CORTICOSTEROID [Suspect]
     Route: 065
     Dates: start: 20111218
  11. CORTICOSTEROID [Suspect]
     Route: 065
     Dates: start: 20111001
  12. CORTICOSTEROID [Suspect]
     Route: 065
     Dates: start: 20111201
  13. CORTICOSTEROID [Suspect]
     Route: 065
     Dates: start: 20111201
  14. CORTICOSTEROID [Suspect]
     Route: 065
     Dates: start: 20120115
  15. CORTICOSTEROID [Suspect]
     Route: 065
     Dates: start: 20120115
  16. CORTICOSTEROID [Suspect]
     Indication: RASH GENERALISED
     Route: 065
     Dates: start: 20120706
  17. REMICADE [Suspect]
     Indication: CROHN'S DISEASE
     Route: 042
     Dates: start: 20111218
  18. REMICADE [Suspect]
     Route: 042
     Dates: start: 20120115
  19. REMICADE [Suspect]
     Dosage: START DATE : 15-DEC-2011
     Route: 042
     Dates: start: 20111201
  20. CORTICOSTEROID [Suspect]
     Route: 065
     Dates: start: 20111001
  21. CORTICOSTEROID [Suspect]
     Route: 065
     Dates: start: 20111218
  22. AZATHIOPRINE SODIUM [Concomitant]
     Route: 048
     Dates: start: 20111201

REACTIONS (14)
  - RASH GENERALISED [None]
  - ANXIETY [None]
  - MEMORY IMPAIRMENT [None]
  - PRURITUS [None]
  - EYE DISORDER [None]
  - MOOD ALTERED [None]
  - ARTHRALGIA [None]
  - HYPERSENSITIVITY [None]
  - SOMNOLENCE [None]
  - SKIN MASS [None]
  - SENSORY DISTURBANCE [None]
  - FEELING OF BODY TEMPERATURE CHANGE [None]
  - ALOPECIA [None]
  - PAIN [None]
